FAERS Safety Report 22602349 (Version 2)
Quarter: 2023Q2

REPORT INFORMATION
  Report Type: Spontaneous
  Country: CO (occurrence: CO)
  Receive Date: 20230614
  Receipt Date: 20230620
  Transmission Date: 20230721
  Serious: Yes (Life-Threatening, Hospitalization)
  Sender: FDA-Public Use
  Company Number: CO-GE HEALTHCARE-2023CSU004695

PATIENT
  Age: 22 Year
  Sex: Female
  Weight: 65 kg

DRUGS (3)
  1. CLARISCAN [Suspect]
     Active Substance: GADOTERATE MEGLUMINE
     Indication: Magnetic resonance imaging thoracic
     Dosage: 0.1 MMOL/KG AT 2 ML/SEC RATE, SINGLE DOSE
     Route: 042
     Dates: start: 20230421, end: 20230421
  2. CLARISCAN [Suspect]
     Active Substance: GADOTERATE MEGLUMINE
     Indication: Bone lesion
  3. QUETIAPINE [Concomitant]
     Active Substance: QUETIAPINE
     Indication: Somnolence
     Dosage: UNK
     Route: 048
     Dates: start: 20230420, end: 20230420

REACTIONS (2)
  - Anaphylactic reaction [Recovered/Resolved]
  - Panic attack [Recovered/Resolved]

NARRATIVE: CASE EVENT DATE: 20230421
